FAERS Safety Report 9764485 (Version 1)
Quarter: 2013Q4

REPORT INFORMATION
  Report Type: Spontaneous
  Country: JP (occurrence: JP)
  Receive Date: 20131217
  Receipt Date: 20131217
  Transmission Date: 20140711
  Serious: Yes (Hospitalization)
  Sender: FDA-Public Use
  Company Number: JP-ROCHE-1317158

PATIENT
  Age: 66 Year
  Sex: Male
  Weight: 80 kg

DRUGS (17)
  1. PEGASYS [Suspect]
     Indication: CHRONIC HEPATITIS C
     Route: 058
     Dates: start: 20120508, end: 20120515
  2. PEGASYS [Suspect]
     Indication: CHRONIC HEPATITIS C
     Route: 058
     Dates: start: 20120529, end: 20131022
  3. PREDONINE [Concomitant]
     Indication: GLOMERULONEPHRITIS MEMBRANOUS
     Route: 048
     Dates: start: 20120413, end: 20120430
  4. PREDONINE [Concomitant]
     Indication: GLOMERULONEPHRITIS MEMBRANOUS
     Route: 048
     Dates: start: 20120501, end: 20120528
  5. PREDONINE [Concomitant]
     Indication: GLOMERULONEPHRITIS MEMBRANOUS
     Route: 048
     Dates: start: 20120529, end: 20120625
  6. PREDONINE [Concomitant]
     Indication: GLOMERULONEPHRITIS MEMBRANOUS
     Route: 048
     Dates: start: 20120626, end: 20120723
  7. PREDONINE [Concomitant]
     Indication: GLOMERULONEPHRITIS MEMBRANOUS
     Route: 048
     Dates: start: 20120724, end: 20120903
  8. PREDONINE [Concomitant]
     Indication: GLOMERULONEPHRITIS MEMBRANOUS
     Route: 048
     Dates: start: 20120904, end: 20121001
  9. PREDONINE [Concomitant]
     Indication: GLOMERULONEPHRITIS MEMBRANOUS
     Route: 048
     Dates: start: 20121002, end: 20121029
  10. PREDONINE [Concomitant]
     Indication: GLOMERULONEPHRITIS MEMBRANOUS
     Route: 048
     Dates: start: 20121030, end: 20130225
  11. PREDONINE [Concomitant]
     Indication: GLOMERULONEPHRITIS MEMBRANOUS
     Route: 048
     Dates: start: 20130226, end: 20130506
  12. PREDONINE [Concomitant]
     Indication: GLOMERULONEPHRITIS MEMBRANOUS
     Route: 048
     Dates: start: 20130507, end: 20130812
  13. ONEALFA [Concomitant]
     Indication: OSTEOPOROSIS PROPHYLAXIS
     Route: 048
     Dates: start: 20120404
  14. LIVACT [Concomitant]
     Indication: HYPOALBUMINAEMIA
     Route: 048
     Dates: start: 20120508
  15. ALDACTONE A [Concomitant]
     Indication: OEDEMA
     Route: 048
     Dates: start: 20120508, end: 20120626
  16. RABEPRAZOLE SODIUM [Concomitant]
     Indication: PROPHYLAXIS AGAINST GASTROINTESTINAL ULCER
     Route: 048
     Dates: start: 20130110
  17. EXFORGE [Concomitant]
     Indication: HYPERTENSION
     Route: 048
     Dates: start: 20130110

REACTIONS (1)
  - Autoimmune haemolytic anaemia [Recovered/Resolved]
